FAERS Safety Report 20297614 (Version 1)
Quarter: 2022Q1

REPORT INFORMATION
  Report Type: Spontaneous
  Country: US (occurrence: None)
  Receive Date: 20220105
  Receipt Date: 20220105
  Transmission Date: 20220423
  Serious: No
  Sender: FDA-Public Use
  Company Number: US-ROCHE-2752692

PATIENT
  Sex: Male

DRUGS (2)
  1. HEMLIBRA [Suspect]
     Active Substance: EMICIZUMAB-KXWH
     Indication: Factor VIII deficiency
     Dosage: INJECT HEMLIBRA 420MG (2.8ML) SUBCUTAN EOUSLY ONCE A MONTH. USE (2X 150MG) + (2X 60MG) FOR EACH DOSE
     Route: 058
  2. ELOCTATE [Concomitant]
     Active Substance: (1-743)-(1638-2332)-BLOOD-COAGULATION FACTOR VIII (SYNTHETIC HUMAN) FUSION PROTEIN WITH IMMUNOGLOBUL
     Indication: Factor VIII deficiency
     Dosage: INFUSE ~ 3200 UNITS (+/-10%) INTRAVENOUSLY AS NEEDED FOR BLEEDING
     Route: 042

REACTIONS (1)
  - Haemorrhage [Unknown]
